FAERS Safety Report 21856629 (Version 1)
Quarter: 2023Q1

REPORT INFORMATION
  Report Type: Spontaneous
  Country: US (occurrence: US)
  Receive Date: 20230113
  Receipt Date: 20230113
  Transmission Date: 20230418
  Serious: No
  Sender: FDA-Public Use
  Company Number: US-ABBVIE-4230246

PATIENT
  Sex: Male

DRUGS (6)
  1. SKYRIZI [Suspect]
     Active Substance: RISANKIZUMAB-RZAA
     Indication: Product used for unknown indication
     Route: 058
  2. EUCRISA [Suspect]
     Active Substance: CRISABOROLE
     Indication: Product used for unknown indication
     Route: 061
  3. EUCRISA [Suspect]
     Active Substance: CRISABOROLE
     Indication: Product used for unknown indication
     Dosage: 2% OINTMENT
  4. CLOBETASOL [Concomitant]
     Active Substance: CLOBETASOL
     Indication: Product used for unknown indication
     Dosage: 0.05%  SHAMPOO
  5. LAC-HYDRIN [Concomitant]
     Active Substance: AMMONIUM LACTATE
     Indication: Product used for unknown indication
     Dosage: 12% CREAM
  6. Diprolene 0.05% [Concomitant]
     Indication: Product used for unknown indication

REACTIONS (4)
  - Drug ineffective [Unknown]
  - Psoriasis [Unknown]
  - Influenza [Unknown]
  - Skin disorder [Unknown]
